FAERS Safety Report 18835269 (Version 3)
Quarter: 2021Q1

REPORT INFORMATION
  Report Type: Report from Study
  Country: FR (occurrence: FR)
  Receive Date: 20210203
  Receipt Date: 20210312
  Transmission Date: 20210419
  Serious: Yes (Other)
  Sender: FDA-Public Use
  Company Number: PHHY2019FR011651

PATIENT
  Age: 30 Year
  Sex: Male

DRUGS (9)
  1. COSENTYX [Suspect]
     Active Substance: SECUKINUMAB
     Dosage: 300 MG, UNK
     Route: 065
     Dates: start: 20161221
  2. COSENTYX [Suspect]
     Active Substance: SECUKINUMAB
     Dosage: 300 MG, UNK
     Route: 065
     Dates: start: 20190604
  3. COSENTYX [Suspect]
     Active Substance: SECUKINUMAB
     Indication: PSORIATIC ARTHROPATHY
     Dosage: 300 MG, UNK
     Route: 065
     Dates: start: 20161123
  4. TRUVADA [Concomitant]
     Active Substance: EMTRICITABINE\TENOFOVIR DISOPROXIL FUMARATE
     Indication: PROPHYLAXIS
     Dosage: 445 MG, UNK
     Route: 065
     Dates: start: 201806
  5. COSENTYX [Suspect]
     Active Substance: SECUKINUMAB
     Dosage: 300 MG, UNK
     Route: 065
     Dates: start: 20161222
  6. COLECALCIFEROL [Concomitant]
     Active Substance: CHOLECALCIFEROL
     Indication: PROPHYLAXIS
     Dosage: 100000 OT, UNK
     Route: 065
     Dates: start: 201612
  7. CLARELUX [Concomitant]
     Active Substance: CLOBETASOL PROPIONATE
     Indication: PSORIASIS
     Dosage: 1 DF, UNK
     Route: 065
     Dates: start: 2017
  8. AERIUS [Concomitant]
     Indication: PRURITUS
     Dosage: 5 MG, UNK
     Route: 065
     Dates: start: 2006
  9. COSENTYX [Suspect]
     Active Substance: SECUKINUMAB
     Dosage: 300 MG, UNK
     Route: 065
     Dates: start: 20190507

REACTIONS (6)
  - Neutropenia [Recovered/Resolved]
  - Sinusitis [Recovered/Resolved]
  - Chondropathy [Recovered/Resolved]
  - Neutropenia [Recovered/Resolved]
  - Acne [Recovered/Resolved]
  - Chlamydial infection [Recovered/Resolved]

NARRATIVE: CASE EVENT DATE: 201811
